FAERS Safety Report 6903727-2 (Version None)
Quarter: 2010Q3

REPORT INFORMATION
  Report Type: 
  Country: None (occurrence: None)
  Receive Date: 20100804
  Receipt Date: 20081120
  Transmission Date: 20110219
  Serious: Yes (Hospitalization, Other)
  Sender: FDA-Public Use
  Company Number: US-PFIZER INC-2008088193

PATIENT
  Sex: Female
  Weight: 58.1 kg

DRUGS (2)
  1. LYRICA [Suspect]
  2. INTERFERON BETA-1A [Concomitant]
     Indication: MULTIPLE SCLEROSIS

REACTIONS (2)
  - ANAEMIA [None]
  - OEDEMA PERIPHERAL [None]
